FAERS Safety Report 25520519 (Version 3)
Quarter: 2025Q3

REPORT INFORMATION
  Report Type: Spontaneous
  Country: GB (occurrence: GB)
  Receive Date: 20250704
  Receipt Date: 20250904
  Transmission Date: 20251020
  Serious: Yes (Hospitalization)
  Sender: PFIZER
  Company Number: GB-PFM-2025-03167

PATIENT
  Age: 10 Year
  Sex: Female
  Weight: 41.5 kg

DRUGS (6)
  1. BINIMETINIB [Suspect]
     Active Substance: BINIMETINIB
     Dosage: 15 MG, BID (2/DAY)
     Dates: start: 20240306, end: 20250625
  2. BINIMETINIB [Suspect]
     Active Substance: BINIMETINIB
     Dates: end: 20250825
  3. BEVACIZUMAB [Concomitant]
     Active Substance: BEVACIZUMAB
     Indication: Optic glioma
     Dates: start: 20240302, end: 20250625
  4. CO TRIMOXAZOLE BIOTECH [Concomitant]
     Indication: Prophylaxis
     Route: 048
     Dates: start: 2018
  5. CHOLECALCIFEROL [Concomitant]
     Active Substance: CHOLECALCIFEROL
     Indication: Vitamin D deficiency
     Route: 048
     Dates: start: 20240517
  6. ONDANSETRON [ONDANSETRON HYDROCHLORIDE DIHYDRATE] [Concomitant]
     Indication: Nausea
     Dosage: 4 MG, 3X/DAY
     Route: 048

REACTIONS (9)
  - Headache [Recovered/Resolved]
  - Nausea [Unknown]
  - Ankle fracture [Recovering/Resolving]
  - Fall [Unknown]
  - Diarrhoea [Unknown]
  - Tenderness [Recovering/Resolving]
  - Product dose omission issue [Unknown]
  - Off label use [Unknown]
  - Product use issue [Unknown]

NARRATIVE: CASE EVENT DATE: 20240306
